FAERS Safety Report 12215686 (Version 5)
Quarter: 2016Q4

REPORT INFORMATION
  Report Type: Spontaneous
  Country: FR (occurrence: FR)
  Receive Date: 20160328
  Receipt Date: 20161101
  Transmission Date: 20170207
  Serious: Yes (Hospitalization, Other)
  Sender: FDA-Public Use
  Company Number: PHHY2016FR040341

PATIENT
  Age: 79 Year
  Sex: Female

DRUGS (11)
  1. LASILIX [Suspect]
     Active Substance: FUROSEMIDE
     Indication: HYPERTENSION
     Dosage: 20 MG, QD
     Route: 048
     Dates: end: 20151025
  2. CO RENITEC [Suspect]
     Active Substance: ENALAPRIL MALEATE\HYDROCHLOROTHIAZIDE
     Indication: PRODUCT USED FOR UNKNOWN INDICATION
     Dosage: UNK, QD
     Route: 048
     Dates: end: 20151025
  3. MEDIATENSYL [Suspect]
     Active Substance: URAPIDIL
     Indication: PRODUCT USED FOR UNKNOWN INDICATION
     Dosage: UNK, BID
     Route: 048
     Dates: end: 20151025
  4. VOLTAREN [Suspect]
     Active Substance: DICLOFENAC SODIUM
     Indication: LUMBAR SPINAL STENOSIS
  5. DIFFU-K [Suspect]
     Active Substance: POTASSIUM CHLORIDE
     Indication: PRODUCT USED FOR UNKNOWN INDICATION
     Dosage: UNK, BID
     Route: 048
     Dates: end: 20151025
  6. FENOFIBRATE. [Suspect]
     Active Substance: FENOFIBRATE
     Indication: PRODUCT USED FOR UNKNOWN INDICATION
     Dosage: 200 MG, QD
     Route: 048
     Dates: end: 20151025
  7. VASTAREL [Suspect]
     Active Substance: TRIMETAZIDINE DIHYDROCHLORIDE
     Indication: PRODUCT USED FOR UNKNOWN INDICATION
     Dosage: 2 DF, QD
     Route: 048
     Dates: end: 20151025
  8. LERCAN [Suspect]
     Active Substance: LERCANIDIPINE
     Indication: PRODUCT USED FOR UNKNOWN INDICATION
     Dosage: 20 MG, QD
     Route: 048
     Dates: end: 20151025
  9. VOLTAREN [Suspect]
     Active Substance: DICLOFENAC SODIUM
     Indication: SCIATICA
     Dosage: 75 MG, BID
     Route: 048
     Dates: end: 20151025
  10. ZOLPIDEM [Suspect]
     Active Substance: ZOLPIDEM\ZOLPIDEM TARTRATE
     Indication: PRODUCT USED FOR UNKNOWN INDICATION
     Dosage: 10 MG, QD
     Route: 048
     Dates: end: 20151025
  11. DOLIPRANE [Suspect]
     Active Substance: ACETAMINOPHEN
     Indication: PRODUCT USED FOR UNKNOWN INDICATION
     Dosage: 1 G, TID
     Route: 048
     Dates: end: 20151025

REACTIONS (5)
  - Fall [Recovered/Resolved]
  - Hypotension [Recovered/Resolved]
  - Somnolence [Recovered/Resolved]
  - Rhabdomyolysis [Recovered/Resolved]
  - Acute kidney injury [Recovering/Resolving]

NARRATIVE: CASE EVENT DATE: 20151025
